FAERS Safety Report 6847159-4 (Version None)
Quarter: 2010Q3

REPORT INFORMATION
  Report Type: 
  Country: None (occurrence: None)
  Receive Date: 20100716
  Receipt Date: 20100707
  Transmission Date: 20110219
  Serious: No
  Sender: FDA-Public Use
  Company Number: US-BIOGENIDEC-2010BI022856

PATIENT
  Sex: Female

DRUGS (1)
  1. AVONEX [Suspect]
     Indication: MULTIPLE SCLEROSIS
     Route: 030
     Dates: start: 20080401

REACTIONS (5)
  - ANTI-THYROID ANTIBODY POSITIVE [None]
  - AUTOIMMUNE THYROIDITIS [None]
  - COGNITIVE DISORDER [None]
  - GOITRE [None]
  - THYROID FUNCTION TEST ABNORMAL [None]
